FAERS Safety Report 5085977-6 (Version None)
Quarter: 2006Q3

REPORT INFORMATION
  Report Type: 
  Country: None (occurrence: None)
  Receive Date: 20060817
  Receipt Date: 20060804
  Transmission Date: 20061208
  Serious: Yes (Hospitalization)
  Sender: FDA-Public Use
  Company Number: 2006093282

PATIENT
  Age: 84 Year
  Sex: Female

DRUGS (2)
  1. NORVASC [Suspect]
     Indication: HYPERTENSION
     Dosage: ORAL
     Route: 048
     Dates: start: 20060501, end: 20060625
  2. CLOTIAZEPAM (CLOTIAZEPAM) [Suspect]
     Indication: INSOMNIA
     Dosage: 5 MG (5 MG, FREQUENCY: OD), ORAL
     Route: 048
     Dates: start: 20060501, end: 20060625

REACTIONS (3)
  - LYMPHOCYTE STIMULATION TEST POSITIVE [None]
  - SKIN TEST POSITIVE [None]
  - STEVENS-JOHNSON SYNDROME [None]
